FAERS Safety Report 5579051-X (Version None)
Quarter: 2007Q4

REPORT INFORMATION
  Report Type: 
  Country: None (occurrence: None)
  Receive Date: 20071228
  Receipt Date: 20071228
  Transmission Date: 20080405
  Serious: Yes (Hospitalization)
  Sender: FDA-Public Use
  Company Number: None

PATIENT
  Age: 70 Year
  Sex: Female
  Weight: 48.98 kg

DRUGS (6)
  1. ALIMTA [Suspect]
     Indication: TONGUE NEOPLASM MALIGNANT STAGE UNSPECIFIED
     Dosage: 500MG/M2 / EVERY 21DAYS / IV
     Route: 042
     Dates: start: 20071214
  2. AVASTIN [Suspect]
     Indication: TONGUE NEOPLASM MALIGNANT STAGE UNSPECIFIED
     Dosage: 15MG/KG/ EVERY21DAYS/ IV
     Route: 042
     Dates: start: 20071214
  3. FOLIC ACID [Concomitant]
  4. DECADRON [Concomitant]
  5. MORPHINE SUL INJ [Concomitant]
  6. TORCEVA [Concomitant]

REACTIONS (2)
  - ANAEMIA [None]
  - TUMOUR HAEMORRHAGE [None]
